FAERS Safety Report 13693112 (Version 1)
Quarter: 2017Q2

REPORT INFORMATION
  Report Type: Spontaneous
  Country: US (occurrence: US)
  Receive Date: 20170627
  Receipt Date: 20170627
  Transmission Date: 20170830
  Serious: No
  Sender: FDA-Public Use
  Company Number: US-MYLANLABS-2016M1050005

PATIENT
  Sex: Female
  Weight: 72.56 kg

DRUGS (6)
  1. LISINOPRIL. [Concomitant]
     Active Substance: LISINOPRIL
     Indication: HYPERTENSION
  2. TENORMIN [Concomitant]
     Active Substance: ATENOLOL
     Indication: MITRAL VALVE PROLAPSE
     Dosage: UNK
  3. LISINOPRIL. [Concomitant]
     Active Substance: LISINOPRIL
     Indication: MITRAL VALVE PROLAPSE
     Dosage: UNK
  4. PRAZOSIN HYDROCHLORIDE CAPSULES USP [Suspect]
     Active Substance: PRAZOSIN HYDROCHLORIDE
     Indication: NIGHTMARE
  5. PRAZOSIN HYDROCHLORIDE CAPSULES USP [Suspect]
     Active Substance: PRAZOSIN HYDROCHLORIDE
     Indication: POST-TRAUMATIC STRESS DISORDER
     Dosage: 1 MG, HS
     Route: 048
     Dates: start: 20161020
  6. TENORMIN [Concomitant]
     Active Substance: ATENOLOL
     Indication: HYPERTENSION

REACTIONS (1)
  - Drug ineffective for unapproved indication [Unknown]
